FAERS Safety Report 17464341 (Version 1)
Quarter: 2020Q1

REPORT INFORMATION
  Report Type: Spontaneous
  Country: CN (occurrence: CN)
  Receive Date: 20200226
  Receipt Date: 20200226
  Transmission Date: 20200409
  Serious: Yes (Life-Threatening)
  Sender: FDA-Public Use
  Company Number: CN-BAYER-2020-029728

PATIENT
  Age: 64 Year
  Sex: Female
  Weight: 55 kg

DRUGS (1)
  1. IOPROMIDE. [Suspect]
     Active Substance: IOPROMIDE
     Indication: ANGIOGRAM PERIPHERAL
     Dosage: 100 ML, ONCE
     Route: 041
     Dates: start: 20200212, end: 20200212

REACTIONS (5)
  - Chills [Recovering/Resolving]
  - Palpitations [Recovered/Resolved]
  - Temperature intolerance [Recovering/Resolving]
  - Hyperhidrosis [Recovering/Resolving]
  - Dysphoria [Recovered/Resolved]

NARRATIVE: CASE EVENT DATE: 20200212
